FAERS Safety Report 12404788 (Version 2)
Quarter: 2016Q2

REPORT INFORMATION
  Report Type: Report from Study
  Country: BG (occurrence: BG)
  Receive Date: 20160525
  Receipt Date: 20160607
  Transmission Date: 20160815
  Serious: Yes (Hospitalization)
  Sender: FDA-Public Use
  Company Number: BG-ABBVIE-16P-022-1632732-00

PATIENT
  Age: 75 Year
  Sex: Male

DRUGS (4)
  1. OMBITASVIR/PARITAPREVIR/RITONAVIR [Suspect]
     Active Substance: OMBITASVIR\PARITAPREVIR\RITONAVIR
     Indication: HEPATITIS C
     Route: 048
     Dates: start: 20150109, end: 20150403
  2. ENAP [Concomitant]
     Active Substance: ENALAPRIL
     Indication: HYPERTENSION
  3. BETALOK [Concomitant]
     Indication: HYPERTENSION
  4. DASABUVIR [Suspect]
     Active Substance: DASABUVIR
     Indication: HEPATITIS C
     Route: 048
     Dates: start: 20150109, end: 20150403

REACTIONS (1)
  - Hepatocellular carcinoma [Not Recovered/Not Resolved]
